FAERS Safety Report 19232767 (Version 1)
Quarter: 2021Q2

REPORT INFORMATION
  Report Type: Spontaneous
  Country: JP (occurrence: JP)
  Receive Date: 20210507
  Receipt Date: 20210507
  Transmission Date: 20210717
  Serious: Yes (Hospitalization, Other)
  Sender: FDA-Public Use
  Company Number: JP-PFIZER INC-2021473135

PATIENT
  Age: 48 Year
  Sex: Female
  Weight: 42 kg

DRUGS (6)
  1. PREDNISOLONE. [Concomitant]
     Active Substance: PREDNISOLONE
     Dosage: UNK
  2. PREDNISOLONE. [Concomitant]
     Active Substance: PREDNISOLONE
     Indication: SYSTEMIC LUPUS ERYTHEMATOSUS
     Dosage: 0.5 MG/KG, DAILY
     Dates: start: 2000
  3. PREDNISOLONE. [Concomitant]
     Active Substance: PREDNISOLONE
     Dosage: 0.25
  4. PREDNISOLONE. [Concomitant]
     Active Substance: PREDNISOLONE
     Dosage: 0.5 MG/KG, DAILY
  5. REVATIO [Suspect]
     Active Substance: SILDENAFIL CITRATE
     Indication: PULMONARY ARTERIAL HYPERTENSION
     Dosage: 40 MG, DAILY
     Dates: start: 2005
  6. BOSENTAN. [Concomitant]
     Active Substance: BOSENTAN
     Dosage: 250 MG, DAILY
     Dates: start: 2005

REACTIONS (7)
  - Pulmonary arterial hypertension [Unknown]
  - Raynaud^s phenomenon [Unknown]
  - Haemoptysis [Unknown]
  - Condition aggravated [Unknown]
  - Skin ulcer [Unknown]
  - Product use issue [Unknown]
  - Off label use [Unknown]

NARRATIVE: CASE EVENT DATE: 2005
